FAERS Safety Report 9655960 (Version 1)
Quarter: 2013Q4

REPORT INFORMATION
  Report Type: Spontaneous
  Country: US (occurrence: None)
  Receive Date: 20131029
  Receipt Date: 20131029
  Transmission Date: 20140711
  Serious: Yes (Hospitalization, Disabling)
  Sender: FDA-Public Use
  Company Number: None

PATIENT
  Age: 56 Year
  Sex: Male
  Weight: 113.4 kg

DRUGS (2)
  1. LEVOTHYROXINE [Suspect]
     Indication: HYPOGONADISM
     Dosage: 1 TABLET ONCE DAILY TAKEN BY MOUTH
     Route: 048
     Dates: start: 20111201, end: 20111227
  2. LEVOTHYROXINE [Suspect]
     Indication: PITUITARY TUMOUR BENIGN
     Dosage: 1 TABLET ONCE DAILY TAKEN BY MOUTH
     Route: 048
     Dates: start: 20111228, end: 20120112

REACTIONS (12)
  - Pain [None]
  - Arthralgia [None]
  - Lethargy [None]
  - Insomnia [None]
  - Weight decreased [None]
  - Nervousness [None]
  - Anxiety [None]
  - Chills [None]
  - Heart rate increased [None]
  - Gait disturbance [None]
  - Muscle twitching [None]
  - Chest pain [None]
